FAERS Safety Report 5973819-3 (Version None)
Quarter: 2008Q4

REPORT INFORMATION
  Report Type: 
  Country: None (occurrence: None)
  Receive Date: 20081201
  Receipt Date: 20081120
  Transmission Date: 20090506
  Serious: Yes (Other)
  Sender: FDA-Public Use
  Company Number: AR-AMGEN-US320680

PATIENT
  Sex: Male

DRUGS (5)
  1. ENBREL [Suspect]
     Indication: ANKYLOSING SPONDYLITIS
     Route: 058
     Dates: start: 20071123, end: 20080701
  2. NAPROXEN [Concomitant]
     Indication: PAIN
     Route: 048
  3. NAPROXEN [Concomitant]
     Indication: INFLAMMATION
  4. MEPREDNISONE [Concomitant]
     Route: 048
  5. METHOTREXATE [Concomitant]
     Indication: ANKYLOSING SPONDYLITIS
     Route: 065

REACTIONS (1)
  - PULMONARY TUBERCULOSIS [None]
